FAERS Safety Report 22215427 (Version 2)
Quarter: 2025Q4

REPORT INFORMATION
  Report Type: Spontaneous
  Country: EU (occurrence: EU)
  Receive Date: 20230416
  Receipt Date: 20251017
  Transmission Date: 20260117
  Serious: Yes (Other)
  Sender: AUROBINDO
  Company Number: EU-MYLANLABS-2023M1034444

PATIENT
  Age: 46 Year
  Sex: Female
  Weight: 72.5 kg

DRUGS (4)
  1. SERTRALINE [Suspect]
     Active Substance: SERTRALINE HYDROCHLORIDE
     Indication: Depression
     Dosage: 100 MILLIGRAM, ONCE A DAY
     Route: 065
  2. MIRTAZAPINE [Concomitant]
     Active Substance: MIRTAZAPINE
     Indication: Depression
     Dosage: 30 MILLIGRAM, ONCE A DAY  (NIGHT)
     Route: 065
  3. CITALOPRAM [Concomitant]
     Active Substance: CITALOPRAM
     Indication: Depression
     Dosage: 10 MILLIGRAM, EVERY MORNING
     Route: 065
  4. CITALOPRAM [Concomitant]
     Active Substance: CITALOPRAM
     Dosage: 20 MILLIGRAM, EVERY MORNING ( AFTER A WEEK A DOSE OF 20 MG IN THE MORNING)
     Route: 065

REACTIONS (4)
  - Mental impairment [Unknown]
  - Stupor [Unknown]
  - Weight increased [Recovered/Resolved]
  - Indifference [Unknown]
